FAERS Safety Report 7468267-3 (Version None)
Quarter: 2011Q2

REPORT INFORMATION
  Report Type: 
  Country: None (occurrence: None)
  Receive Date: 20110509
  Receipt Date: 20110503
  Transmission Date: 20111010
  Serious: Yes (Hospitalization)
  Sender: FDA-Public Use
  Company Number: PHHO2011CZ07703

PATIENT
  Sex: Female
  Weight: 65.5 kg

DRUGS (1)
  1. ALPRAZOLAM [Suspect]
     Indication: MULTIPLE SCLEROSIS
     Dosage: DOSE BLINDED
     Route: 048

REACTIONS (2)
  - SCIATICA [None]
  - INTERVERTEBRAL DISC PROTRUSION [None]
